FAERS Safety Report 9145767 (Version 1)
Quarter: 2013Q1

REPORT INFORMATION
  Report Type: Spontaneous
  Country: BR (occurrence: BR)
  Receive Date: 20130307
  Receipt Date: 20130307
  Transmission Date: 20140127
  Serious: Yes (Other)
  Sender: FDA-Public Use
  Company Number: PHHY2013BR021600

PATIENT
  Sex: Female

DRUGS (2)
  1. STALEVO [Suspect]
     Indication: NERVOUS SYSTEM DISORDER
     Dosage: 1 DF, DAILY
     Route: 048
  2. DIOVAN [Suspect]
     Dosage: 1 DF, DAILY
     Route: 048

REACTIONS (4)
  - Labyrinthitis [Not Recovered/Not Resolved]
  - Fibromyalgia [Not Recovered/Not Resolved]
  - Diarrhoea [Not Recovered/Not Resolved]
  - Malaise [Not Recovered/Not Resolved]
